FAERS Safety Report 4945295-0 (Version None)
Quarter: 2006Q1

REPORT INFORMATION
  Report Type: 
  Country: None (occurrence: None)
  Receive Date: 20060111
  Receipt Date: 20051019
  Transmission Date: 20060701
  Serious: Yes (Hospitalization)
  Sender: FDA-Public Use
  Company Number: A001-002-006677

PATIENT
  Age: 73 Year
  Sex: Female

DRUGS (3)
  1. ARICEPT [Suspect]
     Indication: DEPRESSION
     Dosage: 10 MG, 1 IN 1 D, ORAL
     Route: 048
     Dates: start: 20050929, end: 20051004
  2. SYNTHROID [Concomitant]
  3. LEXAPRO [Concomitant]

REACTIONS (4)
  - AGGRESSION [None]
  - CRYING [None]
  - DIARRHOEA [None]
  - NAUSEA [None]
